FAERS Safety Report 23301342 (Version 1)
Quarter: 2023Q4

REPORT INFORMATION
  Report Type: Report from Study
  Country: KR (occurrence: KR)
  Receive Date: 20231215
  Receipt Date: 20231215
  Transmission Date: 20240110
  Serious: Yes (Hospitalization)
  Sender: FDA-Public Use
  Company Number: KR-MYLANLABS-2023M1131236

PATIENT
  Age: 41 Year
  Sex: Female
  Weight: 64 kg

DRUGS (2)
  1. LYRICA CR [Suspect]
     Active Substance: PREGABALIN
     Indication: Radiculopathy
     Dosage: 165 MILLIGRAM, QD
     Route: 065
     Dates: start: 20210305, end: 20210325
  2. GABAPENTIN [Concomitant]
     Active Substance: GABAPENTIN
     Indication: Radiculopathy
     Dosage: UNK
     Route: 065

REACTIONS (1)
  - Adnexa uteri mass [Recovering/Resolving]

NARRATIVE: CASE EVENT DATE: 20210418
